FAERS Safety Report 8458516-7 (Version None)
Quarter: 2012Q2

REPORT INFORMATION
  Report Type: 
  Country: None (occurrence: None)
  Receive Date: 20120622
  Receipt Date: 20120618
  Transmission Date: 20120825
  Serious: Yes (Hospitalization, Other)
  Sender: FDA-Public Use
  Company Number: US-PFIZER INC-2012147136

PATIENT
  Sex: Male
  Weight: 50.794 kg

DRUGS (1)
  1. VFEND [Suspect]
     Indication: PULMONARY MYCOSIS
     Dosage: 200 MG, 2X/DAY
     Route: 048
     Dates: start: 20120521, end: 20120501

REACTIONS (1)
  - PNEUMONIA [None]
